FAERS Safety Report 7304427-X (Version None)
Quarter: 2011Q1

REPORT INFORMATION
  Report Type: 
  Country: None (occurrence: None)
  Receive Date: 20110221
  Receipt Date: 20110209
  Transmission Date: 20110831
  Serious: Yes (Hospitalization)
  Sender: FDA-Public Use
  Company Number: US-ELI_LILLY_AND_COMPANY-US201102002470

PATIENT
  Sex: Male

DRUGS (2)
  1. GEMCITABINE HYDROCHLORIDE [Suspect]
     Indication: PANCREATIC CARCINOMA
     Dosage: 1000 MG/M2, OTHER
     Dates: start: 20101220, end: 20101220
  2. GEMCITABINE HYDROCHLORIDE [Suspect]
     Dosage: UNK, OTHER
     Dates: start: 20110103

REACTIONS (2)
  - THROMBOCYTOPENIA [None]
  - PULMONARY EMBOLISM [None]
